FAERS Safety Report 9665760 (Version 1)
Quarter: 2013Q4

REPORT INFORMATION
  Report Type: Spontaneous
  Country: US (occurrence: None)
  Receive Date: 20131031
  Receipt Date: 20131031
  Transmission Date: 20140711
  Serious: Yes (Other)
  Sender: FDA-Public Use
  Company Number: None

PATIENT
  Age: 15 Year
  Sex: Male
  Weight: 94.35 kg

DRUGS (1)
  1. ALBUTEROL SULFATE INHALATION SOL 2.5MG /3ML NEPHRON PHARMACEUTICALS CORPORATIO [Suspect]
     Dosage: 1 FOUR TIMES DAILY INHALATION
     Route: 055
     Dates: start: 20130919, end: 20131014

REACTIONS (6)
  - Blood pressure increased [None]
  - Pyrexia [None]
  - Dyspnoea [None]
  - Fatigue [None]
  - Urticaria [None]
  - Malaise [None]
